FAERS Safety Report 12331390 (Version 3)
Quarter: 2016Q4

REPORT INFORMATION
  Report Type: Spontaneous
  Country: US (occurrence: US)
  Receive Date: 20160504
  Receipt Date: 20161021
  Transmission Date: 20170207
  Serious: Yes (Other)
  Sender: FDA-Public Use
  Company Number: US-ALLERGAN-1653745US

PATIENT
  Age: 67 Year
  Sex: Female
  Weight: 49.89 kg

DRUGS (4)
  1. TRAZODONE [Concomitant]
     Active Substance: TRAZODONE HYDROCHLORIDE
     Indication: DEPRESSED MOOD
     Dosage: UNK
     Route: 048
  2. PROZAC [Concomitant]
     Active Substance: FLUOXETINE HYDROCHLORIDE
     Indication: DEPRESSION
     Dosage: UNK
     Route: 048
  3. SYNTHROID [Concomitant]
     Active Substance: LEVOTHYROXINE SODIUM
     Indication: HYPOTHYROIDISM
     Dosage: UNK
     Route: 048
  4. KYBELLA [Suspect]
     Active Substance: DEOXYCHOLIC ACID
     Indication: FAT TISSUE INCREASED
     Dosage: 5 ML, SINGLE
     Route: 058
     Dates: start: 20160408, end: 20160408

REACTIONS (10)
  - Asthenia [Recovered/Resolved]
  - Hypersomnia [Unknown]
  - Injection site bruising [Unknown]
  - Chills [Recovered/Resolved]
  - Loss of consciousness [Recovered/Resolved]
  - Injection site swelling [Unknown]
  - Cough [Recovered/Resolved]
  - Lip dry [Unknown]
  - Dehydration [Unknown]
  - Emotional disorder [Unknown]

NARRATIVE: CASE EVENT DATE: 201604
